FAERS Safety Report 17088124 (Version 4)
Quarter: 2020Q2

REPORT INFORMATION
  Report Type: Report from Study
  Country: IT (occurrence: IT)
  Receive Date: 20191128
  Receipt Date: 20200401
  Transmission Date: 20200713
  Serious: Yes (Death)
  Sender: FDA-Public Use
  Company Number: IT-PFIZER INC-2019511084

PATIENT
  Sex: Female

DRUGS (2)
  1. SOLU-MEDROL [Suspect]
     Active Substance: METHYLPREDNISOLONE SODIUM SUCCINATE
     Indication: MULTIPLE SCLEROSIS RELAPSE
     Dosage: 1 DF, 1X/DAY
     Route: 064
     Dates: start: 20190507, end: 20190511
  2. COPAXONE [Suspect]
     Active Substance: GLATIRAMER ACETATE
     Indication: RELAPSING-REMITTING MULTIPLE SCLEROSIS
     Dosage: 1 DF, ALTERNATE DAY
     Route: 064
     Dates: start: 20180901, end: 20190201

REACTIONS (2)
  - Exposure during pregnancy [Fatal]
  - Premature baby [Fatal]

NARRATIVE: CASE EVENT DATE: 20190507
